FAERS Safety Report 10255035 (Version 1)
Quarter: 2014Q2

REPORT INFORMATION
  Report Type: Spontaneous
  Country: US (occurrence: US)
  Receive Date: 20140624
  Receipt Date: 20140624
  Transmission Date: 20141212
  Serious: No
  Sender: FDA-Public Use
  Company Number: US-MYLANLABS-2013S1016711

PATIENT
  Sex: Male

DRUGS (1)
  1. PRAVASTATIN SODIUM TABLETS USP [Suspect]
     Indication: BLOOD CHOLESTEROL INCREASED
     Route: 048
     Dates: start: 2013, end: 2013

REACTIONS (1)
  - Muscle injury [Not Recovered/Not Resolved]
